FAERS Safety Report 25023122 (Version 1)
Quarter: 2025Q1

REPORT INFORMATION
  Report Type: Spontaneous
  Country: US (occurrence: US)
  Receive Date: 20250228
  Receipt Date: 20250228
  Transmission Date: 20250409
  Serious: No
  Sender: PADAGIS
  Company Number: US-PADAGIS-2025PAD00216

PATIENT

DRUGS (5)
  1. ESTRADIOL VAGINAL [Suspect]
     Active Substance: ESTRADIOL
     Indication: Pollakiuria
     Route: 067
  2. ESTRADIOL VAGINAL [Suspect]
     Active Substance: ESTRADIOL
     Route: 067
  3. ESTRADIOL VAGINAL [Suspect]
     Active Substance: ESTRADIOL
     Route: 067
     Dates: start: 20250124
  4. VITAMIN D NOS [Concomitant]
     Active Substance: CHOLECALCIFEROL\ERGOCALCIFEROL
     Indication: Product used for unknown indication
     Route: 065
  5. VITAMINS [Concomitant]
     Active Substance: VITAMINS
     Indication: Product used for unknown indication
     Route: 065

REACTIONS (4)
  - Extra dose administered [Unknown]
  - Product use in unapproved indication [Unknown]
  - Prescribed underdose [Unknown]
  - Device use issue [Unknown]
